FAERS Safety Report 13214612 (Version 12)
Quarter: 2019Q4

REPORT INFORMATION
  Report Type: Spontaneous
  Country: BE (occurrence: BE)
  Receive Date: 20170210
  Receipt Date: 20191216
  Transmission Date: 20200122
  Serious: Yes (Other)
  Sender: FDA-Public Use
  Company Number: BE-PFIZER INC-2017059786

PATIENT
  Age: 61 Year
  Sex: Male

DRUGS (20)
  1. CYTARABINE. [Suspect]
     Active Substance: CYTARABINE
     Indication: NON-HODGKIN^S LYMPHOMA REFRACTORY
     Dosage: UNK
  2. CYTARABINE. [Suspect]
     Active Substance: CYTARABINE
     Dosage: 200 MG/M2, CYCLIC (ON DAY 2-5)
  3. CARMUSTINE. [Suspect]
     Active Substance: CARMUSTINE
     Indication: NON-HODGKIN^S LYMPHOMA REFRACTORY
     Dosage: 60 MG/M2, CYCLIC (ON DAY 1)
  4. CARMUSTINE. [Suspect]
     Active Substance: CARMUSTINE
     Dosage: 300 MG/M2, CYCLIC (ON DAY 1)
  5. MELPHALAN. [Suspect]
     Active Substance: MELPHALAN
     Indication: NON-HODGKIN^S LYMPHOMA REFRACTORY
     Dosage: 30 MG/M2, CYCLIC (ON DAY 6)
  6. VINCRISTINE SULFATE. [Suspect]
     Active Substance: VINCRISTINE SULFATE
     Indication: NON-HODGKIN^S LYMPHOMA REFRACTORY
     Dosage: UNK
  7. MELPHALAN. [Suspect]
     Active Substance: MELPHALAN
     Dosage: 140 MG/M2, CYCLIC (DAY 6)
  8. CYTARABINE. [Suspect]
     Active Substance: CYTARABINE
     Dosage: 400 MG/M2, CYCLIC (DAY 2-5)
  9. DEXAMETHASONE. [Suspect]
     Active Substance: DEXAMETHASONE
     Indication: NON-HODGKIN^S LYMPHOMA REFRACTORY
     Dosage: UNK
  10. CISPLATIN. [Suspect]
     Active Substance: CISPLATIN
     Indication: NON-HODGKIN^S LYMPHOMA REFRACTORY
     Dosage: UNK
  11. CYCLOPHOSPHAMIDE. [Suspect]
     Active Substance: CYCLOPHOSPHAMIDE
     Dosage: UNK
     Dates: start: 201308
  12. PREDNISONE. [Suspect]
     Active Substance: PREDNISONE
     Indication: NON-HODGKIN^S LYMPHOMA REFRACTORY
     Dosage: UNK
  13. CARBOPLATIN. [Suspect]
     Active Substance: CARBOPLATIN
     Indication: NON-HODGKIN^S LYMPHOMA REFRACTORY
     Dosage: UNK
  14. ETOPOSIDE. [Suspect]
     Active Substance: ETOPOSIDE
     Dosage: 200 MG/M2, CYCLIC (DAY 2-5)
  15. RITUXIMAB. [Suspect]
     Active Substance: RITUXIMAB
     Indication: NON-HODGKIN^S LYMPHOMA REFRACTORY
     Dosage: UNK
  16. DOXORUBICIN HCL [Suspect]
     Active Substance: DOXORUBICIN HYDROCHLORIDE
     Indication: HAEMATOPOIETIC STEM CELL MOBILISATION
     Dosage: UNK
  17. ETOPOSIDE. [Suspect]
     Active Substance: ETOPOSIDE
     Indication: NON-HODGKIN^S LYMPHOMA REFRACTORY
     Dosage: 15 MG/M2, CYCLIC (ON DAY 2-5)
  18. CYCLOPHOSPHAMIDE. [Suspect]
     Active Substance: CYCLOPHOSPHAMIDE
     Indication: NON-HODGKIN^S LYMPHOMA REFRACTORY
     Dosage: UNK
  19. CYCLOPHOSPHAMIDE. [Suspect]
     Active Substance: CYCLOPHOSPHAMIDE
     Dosage: UNK
  20. IFOSFAMIDE. [Suspect]
     Active Substance: IFOSFAMIDE
     Indication: NON-HODGKIN^S LYMPHOMA REFRACTORY
     Dosage: UNK

REACTIONS (4)
  - Kaposi^s sarcoma [Recovering/Resolving]
  - Second primary malignancy [Recovering/Resolving]
  - Product use in unapproved indication [Unknown]
  - Off label use [Unknown]
